FAERS Safety Report 7339273-4 (Version None)
Quarter: 2011Q1

REPORT INFORMATION
  Report Type: 
  Country: None (occurrence: None)
  Receive Date: 20110308
  Receipt Date: 20110304
  Transmission Date: 20110831
  Serious: Yes (Other)
  Sender: FDA-Public Use
  Company Number: KR-PFIZER INC-2011047473

PATIENT
  Sex: Male

DRUGS (1)
  1. CHAMPIX [Suspect]
     Dosage: 0.5 MG, UNK
     Route: 048

REACTIONS (6)
  - DUODENAL ULCER HAEMORRHAGE [None]
  - HAEMORRHAGE [None]
  - GASTRIC HAEMORRHAGE [None]
  - SENSATION OF FOREIGN BODY [None]
  - GINGIVAL BLEEDING [None]
  - ABNORMAL FAECES [None]
